FAERS Safety Report 24276972 (Version 1)
Quarter: 2024Q3

REPORT INFORMATION
  Report Type: Spontaneous
  Country: US (occurrence: US)
  Receive Date: 20240903
  Receipt Date: 20240903
  Transmission Date: 20241016
  Serious: No
  Sender: BAYER
  Company Number: US-BAYER-2024A125545

PATIENT
  Age: 40 Year
  Sex: Male

DRUGS (16)
  1. CIPROFLOXACIN [Suspect]
     Active Substance: CIPROFLOXACIN
  2. PANTOPRAZOLE [Concomitant]
     Active Substance: PANTOPRAZOLE
  3. FUROSEMIDE [Concomitant]
     Active Substance: FUROSEMIDE
  4. ACAMPROSATE [Concomitant]
     Active Substance: ACAMPROSATE
  5. AMOXICILLIN [Concomitant]
     Active Substance: AMOXICILLIN
  6. DIPHENHYDRAMINE [Concomitant]
     Active Substance: DIPHENHYDRAMINE
  7. DRONABINOL [Concomitant]
     Active Substance: DRONABINOL
  8. FAMOTIDINE ACID REDUCER [Concomitant]
  9. GABAPENTIN [Concomitant]
     Active Substance: GABAPENTIN
  10. HYDROXYZINE [Concomitant]
     Active Substance: HYDROXYZINE HYDROCHLORIDE
  11. LIDOCAINE [Concomitant]
     Active Substance: LIDOCAINE
  12. Lactulose AGD [Concomitant]
  13. METOCLOPRAMIDE [Concomitant]
     Active Substance: METOCLOPRAMIDE
  14. MIDODRINE [Concomitant]
     Active Substance: MIDODRINE
  15. PREDNISONE [Concomitant]
     Active Substance: PREDNISONE
  16. MIRTAZAPINE [Concomitant]
     Active Substance: MIRTAZAPINE

REACTIONS (1)
  - False positive investigation result [None]
